FAERS Safety Report 5441213-X (Version None)
Quarter: 2007Q3

REPORT INFORMATION
  Report Type: 
  Country: None (occurrence: None)
  Receive Date: 20070901
  Receipt Date: 20070820
  Transmission Date: 20080115
  Serious: Yes (Other)
  Sender: FDA-Public Use
  Company Number: US-PFIZER INC-2007070474

PATIENT
  Sex: Female
  Weight: 59.09 kg

DRUGS (3)
  1. CHANTIX [Suspect]
     Indication: SMOKING CESSATION THERAPY
     Dates: start: 20070101, end: 20070801
  2. ADVAIR DISKUS 100/50 [Concomitant]
     Indication: ASTHMA
  3. CLARITIN [Concomitant]

REACTIONS (6)
  - ABASIA [None]
  - ABDOMINAL PAIN [None]
  - BACK PAIN [None]
  - FLATULENCE [None]
  - GASTROENTERITIS VIRAL [None]
  - NAUSEA [None]
